FAERS Safety Report 6119542-6 (Version None)
Quarter: 2009Q1

REPORT INFORMATION
  Report Type: 
  Country: None (occurrence: None)
  Receive Date: 20090316
  Receipt Date: 20090310
  Transmission Date: 20090719
  Serious: Yes (Death)
  Sender: FDA-Public Use
  Company Number: A0773287A

PATIENT
  Age: 63 Year
  Sex: Male

DRUGS (1)
  1. SERETIDE [Suspect]
     Indication: EMPHYSEMA

REACTIONS (1)
  - DEATH [None]
